FAERS Safety Report 7085306-2 (Version None)
Quarter: 2010Q4

REPORT INFORMATION
  Report Type: 
  Country: None (occurrence: None)
  Receive Date: 20101105
  Receipt Date: 20101026
  Transmission Date: 20110411
  Serious: Yes (Other)
  Sender: FDA-Public Use
  Company Number: US-PFIZER INC-2010136828

PATIENT
  Sex: Female
  Weight: 49.89 kg

DRUGS (4)
  1. LYRICA [Suspect]
     Indication: PAIN
     Dosage: 75 MG, 3X/DAY
     Route: 048
     Dates: start: 20090101
  2. DILANTIN [Concomitant]
     Indication: CONVULSION
     Dosage: UNK
  3. PHENOBARBITAL [Concomitant]
     Dosage: UNK
  4. KLONOPIN [Concomitant]
     Dosage: UNK

REACTIONS (8)
  - CONJUNCTIVITIS [None]
  - CONVULSION [None]
  - DIPLOPIA [None]
  - MYALGIA [None]
  - NEURALGIA [None]
  - OPTIC NERVE INJURY [None]
  - PHOTOPHOBIA [None]
  - WEIGHT GAIN POOR [None]
